FAERS Safety Report 4391521-9 (Version None)
Quarter: 2004Q3

REPORT INFORMATION
  Report Type: 
  Country: None (occurrence: None)
  Receive Date: 20040701
  Receipt Date: 20040616
  Transmission Date: 20050211
  Serious: Yes (Other)
  Sender: FDA-Public Use
  Company Number: 701497

PATIENT
  Age: 75 Year
  Sex: Male
  Weight: 99.7913 kg

DRUGS (8)
  1. AMEVIVE [Suspect]
     Indication: PSORIASIS
     Dosage: 15 MG QW IM
     Route: 030
     Dates: start: 20031001, end: 20040108
  2. METHOTREXATE [Concomitant]
  3. SORIATANE [Concomitant]
  4. CLOBETASOL PROPIONATE [Concomitant]
  5. PROTOPIC [Concomitant]
  6. ULTRAVATE [Concomitant]
  7. DOVONEX [Concomitant]
  8. TAZORAC [Concomitant]

REACTIONS (7)
  - ASTHENIA [None]
  - CD4 LYMPHOCYTES DECREASED [None]
  - CHILLS [None]
  - IMMUNOSUPPRESSION [None]
  - LYMPHADENOPATHY MEDIASTINAL [None]
  - MYCOSIS FUNGOIDES [None]
  - SKIN NECROSIS [None]
